FAERS Safety Report 5924697-X (Version None)
Quarter: 2008Q4

REPORT INFORMATION
  Report Type: 
  Country: None (occurrence: None)
  Receive Date: 20081016
  Receipt Date: 20081002
  Transmission Date: 20090506
  Serious: Yes (Hospitalization)
  Sender: FDA-Public Use
  Company Number: FABR-1000442

PATIENT
  Age: 63 Year
  Sex: Male

DRUGS (1)
  1. FABRAZYME [Suspect]
     Indication: FABRY'S DISEASE
     Dosage: 70 MG, QOW, INTRAVENOUS
     Route: 042
     Dates: start: 20010915, end: 20050701

REACTIONS (1)
  - CARDIAC FAILURE CONGESTIVE [None]
